FAERS Safety Report 8588040-2 (Version None)
Quarter: 2012Q3

REPORT INFORMATION
  Report Type: 
  Country: None (occurrence: None)
  Receive Date: 20120731
  Receipt Date: 20120717
  Transmission Date: 20120928
  Serious: Yes (Hospitalization)
  Sender: FDA-Public Use
  Company Number: USA/USA/12/0025219

PATIENT
  Age: 52 Year
  Sex: Male

DRUGS (7)
  1. PIPERACILLIN AND TAZOBACTAM [Concomitant]
  2. FENTANYL [Concomitant]
  3. HYDROCHLOROTHIAZIDE [Suspect]
     Indication: HYPERTENSION
     Dosage: UNKNOWN, UNKNOWN
  4. SIMVASTATIN [Suspect]
     Indication: HYPERLIPIDAEMIA
     Dosage: UNKNOWN, UNKNOWN
  5. VALSARTAN [Suspect]
     Indication: HYPERTENSION
     Dosage: UNKNOWN, UNKNOWN
  6. ROPIVACAINE HYDROCHLORIDE [Concomitant]
  7. VANCOMYCIN [Concomitant]

REACTIONS (6)
  - PAIN [None]
  - OEDEMA PERIPHERAL [None]
  - MYOSITIS [None]
  - HYPOAESTHESIA [None]
  - COMPARTMENT SYNDROME [None]
  - IMMOBILE [None]
